FAERS Safety Report 6153892-2 (Version None)
Quarter: 2009Q2

REPORT INFORMATION
  Report Type: 
  Country: None (occurrence: None)
  Receive Date: 20090414
  Receipt Date: 20090306
  Transmission Date: 20091009
  Serious: Yes (Other)
  Sender: FDA-Public Use
  Company Number: JP-JNJFOC-20090201637

PATIENT
  Age: 37 Year
  Sex: Male

DRUGS (6)
  1. TOPINA [Suspect]
     Route: 048
  2. TOPINA [Suspect]
     Route: 048
  3. TOPINA [Suspect]
     Route: 048
  4. TOPINA [Suspect]
     Route: 048
  5. TOPINA [Suspect]
     Route: 048
  6. TOPINA [Suspect]
     Indication: CONVULSION
     Route: 048

REACTIONS (2)
  - CALCULUS BLADDER [None]
  - NEPHROLITHIASIS [None]
